FAERS Safety Report 8336895-9 (Version None)
Quarter: 2012Q2

REPORT INFORMATION
  Report Type: 
  Country: None (occurrence: None)
  Receive Date: 20120501
  Receipt Date: 20120417
  Transmission Date: 20120825
  Serious: Yes (Hospitalization)
  Sender: FDA-Public Use
  Company Number: WAES 1204USA02696

PATIENT
  Age: 47 Year
  Sex: Female

DRUGS (8)
  1. PACLITAXEL [Concomitant]
  2. BEVACIZUMAB [Concomitant]
  3. ERLOTINIB HYDROCHLORIDE [Suspect]
     Indication: METASTASES TO LUNG
     Dosage: PO
     Route: 048
  4. ERLOTINIB HYDROCHLORIDE [Suspect]
     Indication: BREAST CANCER METASTATIC
     Dosage: PO
     Route: 048
  5. BENDAMUSTINE HYDROCHLORIDE [Suspect]
     Indication: METASTASES TO LUNG
     Dosage: IV
     Route: 042
  6. BENDAMUSTINE HYDROCHLORIDE [Suspect]
     Indication: BREAST CANCER METASTATIC
     Dosage: IV
     Route: 042
  7. DECADRON [Suspect]
     Indication: PROPHYLAXIS OF NAUSEA AND VOMITING
     Dosage: 4 MG/BID/PO 12 MG/DAILY/PO 10 MG/PO
     Route: 048
  8. DECADRON [Suspect]
     Indication: PREMEDICATION
     Dosage: 4 MG/BID/PO 12 MG/DAILY/PO 10 MG/PO
     Route: 048

REACTIONS (8)
  - BREAST CANCER METASTATIC [None]
  - NEOPLASM PROGRESSION [None]
  - TACHYCARDIA [None]
  - LYMPHOPENIA [None]
  - BRONCHITIS [None]
  - ACUTE RESPIRATORY DISTRESS SYNDROME [None]
  - PNEUMOCYSTIS JIROVECI PNEUMONIA [None]
  - SEPSIS [None]
